FAERS Safety Report 14666439 (Version 1)
Quarter: 2018Q1

REPORT INFORMATION
  Report Type: Spontaneous
  Country: US (occurrence: US)
  Receive Date: 20180320
  Receipt Date: 20180320
  Transmission Date: 20180509
  Serious: Yes (Hospitalization)
  Sender: FDA-Public Use
  Company Number: None

PATIENT

DRUGS (18)
  1. TERBINAFINE. [Concomitant]
     Active Substance: TERBINAFINE
  2. TRAMADOL. [Concomitant]
     Active Substance: TRAMADOL
  3. ENALAPRIL [Concomitant]
     Active Substance: ENALAPRIL
  4. FOLIC ACID. [Concomitant]
     Active Substance: FOLIC ACID
  5. CITALOPRAM [Concomitant]
     Active Substance: CITALOPRAM HYDROBROMIDE
  6. ENBREL [Suspect]
     Active Substance: ETANERCEPT
     Indication: PSORIASIS
     Route: 058
     Dates: start: 20100129
  7. SIMVASTATIN. [Concomitant]
     Active Substance: SIMVASTATIN
  8. BENZONATATE. [Concomitant]
     Active Substance: BENZONATATE
  9. GLIPIZIDE. [Concomitant]
     Active Substance: GLIPIZIDE
  10. CQARTIA XT [Concomitant]
  11. JANUVIA [Concomitant]
     Active Substance: SITAGLIPTIN PHOSPHATE
  12. IRON [Concomitant]
     Active Substance: IRON
  13. GLYB/METFORMIN [Concomitant]
  14. METROGEL [Concomitant]
     Active Substance: METRONIDAZOLE
  15. AMLODIPINE [Concomitant]
     Active Substance: AMLODIPINE BESYLATE
  16. POTASSIUM CHLORIDE. [Concomitant]
     Active Substance: POTASSIUM CHLORIDE
  17. CLOBETASOL [Concomitant]
     Active Substance: CLOBETASOL
  18. OXYCODONE AND ACETAMINOPHEN [Concomitant]
     Active Substance: ACETAMINOPHEN\OXYCODONE HYDROCHLORIDE

REACTIONS (1)
  - Adverse drug reaction [None]
